FAERS Safety Report 10489312 (Version 1)
Quarter: 2014Q3

REPORT INFORMATION
  Report Type: Spontaneous
  Country: JP (occurrence: None)
  Receive Date: 20140930
  Receipt Date: 20140930
  Transmission Date: 20150326
  Serious: Yes (Death, Other)
  Sender: FDA-Public Use
  Company Number: 2014JUB00144

PATIENT
  Age: 3 Year
  Sex: Male

DRUGS (5)
  1. TACROLIMUS (TACROLIMUS) [Concomitant]
     Active Substance: TACROLIMUS
  2. METHYLPREDNISOLONE [Suspect]
     Active Substance: METHYLPREDNISOLONE
     Indication: ENGRAFTMENT SYNDROME
  3. MEROPENEM (MEROPENEM) [Concomitant]
     Active Substance: MEROPENEM
  4. METHOTREXATE (METHOTREXATE) [Concomitant]
     Active Substance: METHOTREXATE
  5. MICAFUNGIN (MICAFUNGIN) [Concomitant]
     Active Substance: MICAFUNGIN

REACTIONS (13)
  - Zygomycosis [None]
  - Multi-organ failure [None]
  - Pulmonary thrombosis [None]
  - Haematuria [None]
  - Atelectasis [None]
  - Renal necrosis [None]
  - Cerebral infarction [None]
  - Abdominal pain [None]
  - Loss of consciousness [None]
  - Necrosis [None]
  - Haemorrhagic infarction [None]
  - Pleural effusion [None]
  - Hemiparesis [None]
